FAERS Safety Report 10062735 (Version 1)
Quarter: 2014Q2

REPORT INFORMATION
  Report Type: Spontaneous
  Country: JP (occurrence: JP)
  Receive Date: 20140407
  Receipt Date: 20140407
  Transmission Date: 20141212
  Serious: Yes (Other)
  Sender: FDA-Public Use
  Company Number: JP-GLAXOSMITHKLINE-B0981280A

PATIENT
  Sex: Male

DRUGS (10)
  1. FLUNASE 50 MCG 28 METERED SPRAYS [Suspect]
     Indication: RHINORRHOEA
     Route: 045
     Dates: start: 20131209
  2. ARICEPT [Concomitant]
     Route: 048
  3. TAMSULOSIN HYDROCHLORIDE [Concomitant]
     Route: 048
  4. EDIROL [Concomitant]
     Route: 048
  5. REBAMIPIDE [Concomitant]
     Route: 065
  6. LOXONIN [Concomitant]
     Route: 065
  7. TELMISARTAN + HYDROCHLOROTHIAZIDE [Concomitant]
     Route: 048
  8. SENNOSIDE [Concomitant]
     Route: 048
  9. MIYA BM [Concomitant]
     Route: 048
  10. CHINESE MEDICINE [Concomitant]
     Route: 048

REACTIONS (4)
  - Convulsion [Recovered/Resolved]
  - Epilepsy [Unknown]
  - Haemorrhage [Unknown]
  - Abdominal discomfort [Unknown]
